FAERS Safety Report 4312215-1 (Version None)
Quarter: 2004Q1

REPORT INFORMATION
  Report Type: 
  Country: None (occurrence: None)
  Receive Date: 20040305
  Receipt Date: 20030904
  Transmission Date: 20041129
  Serious: Yes (Hospitalization, Other)
  Sender: FDA-Public Use
  Company Number: WAES 0309USA00698

PATIENT
  Age: 53 Year
  Sex: Male

DRUGS (10)
  1. PL GRAN [Concomitant]
     Route: 048
     Dates: start: 20030821, end: 20030823
  2. ACTIOS [Concomitant]
     Route: 042
     Dates: start: 20030801, end: 20030903
  3. ASPIRIN [Concomitant]
     Indication: MYOCARDIAL INFARCTION
     Route: 048
     Dates: start: 20030819
  4. DORNER [Concomitant]
     Indication: PULMONARY HYPERTENSION
     Route: 048
     Dates: start: 19550101
  5. CEFZON [Concomitant]
     Route: 048
     Dates: start: 20030819, end: 20030823
  6. CLAFORAN [Concomitant]
     Route: 042
     Dates: start: 20030801, end: 20030903
  7. PEPCID [Suspect]
     Indication: GASTRIC ULCER
     Route: 048
     Dates: start: 20030819, end: 20030825
  8. LOXONIN [Concomitant]
     Route: 048
     Dates: start: 20030822, end: 20030822
  9. SELBEX [Concomitant]
     Indication: GASTRITIS
     Route: 048
     Dates: start: 19950101, end: 20030825
  10. WARFARIN POTASSIUM [Concomitant]
     Route: 048
     Dates: start: 19950101

REACTIONS (13)
  - ABNORMAL BEHAVIOUR [None]
  - ACUTE MYOCARDIAL INFARCTION [None]
  - DEPRESSED LEVEL OF CONSCIOUSNESS [None]
  - ENCEPHALITIS [None]
  - HEPATIC FAILURE [None]
  - MALAISE [None]
  - MENINGISM [None]
  - PHARYNGOLARYNGEAL PAIN [None]
  - PLEOCYTOSIS [None]
  - PSYCHOTIC DISORDER [None]
  - PYREXIA [None]
  - RENAL FAILURE [None]
  - UPPER RESPIRATORY TRACT INFLAMMATION [None]
